FAERS Safety Report 10644034 (Version 4)
Quarter: 2015Q1

REPORT INFORMATION
  Report Type: Spontaneous
  Country: JP (occurrence: JP)
  Receive Date: 20141210
  Receipt Date: 20150327
  Transmission Date: 20150720
  Serious: Yes (Death, Other)
  Sender: FDA-Public Use
  Company Number: JP-PFIZER INC-2014334634

PATIENT
  Age: 69 Year
  Sex: Male
  Weight: 41 kg

DRUGS (25)
  1. LEVOLEUCOVORIN CALCIUM [Suspect]
     Active Substance: LEVOLEUCOVORIN CALCIUM
     Indication: PANCREATIC CARCINOMA
     Dosage: 270 MG, 1X/DAY (270 MG/BODY, 201.2 MG/M2)
     Route: 041
     Dates: start: 20140811, end: 20140811
  2. DECADRON [Concomitant]
     Active Substance: DEXAMETHASONE
     Dosage: UNK
     Dates: start: 20140812, end: 20140813
  3. BFLUID [Concomitant]
     Active Substance: AMINO ACIDS\DEXTROSE\ELECTROLYTES NOS\VITAMINS
     Dosage: UNK
     Dates: start: 20140818, end: 20140818
  4. ALOXI [Concomitant]
     Active Substance: PALONOSETRON HYDROCHLORIDE
     Dosage: UNK
     Dates: start: 20140811, end: 20140811
  5. OXINORM [Concomitant]
     Active Substance: OXYCODONE HYDROCHLORIDE
     Dosage: UNK
  6. TEPRENONE [Concomitant]
     Active Substance: TEPRENONE
     Dosage: UNK
  7. LOXOPROFEN [Concomitant]
     Active Substance: LOXOPROFEN
     Dosage: UNK
  8. MAGLAX [Concomitant]
     Active Substance: MAGNESIUM OXIDE
     Dosage: UNK
  9. TAKEPRON [Concomitant]
     Active Substance: LANSOPRAZOLE
     Dosage: UNK
  10. SOLU-MEDROL [Concomitant]
     Active Substance: METHYLPREDNISOLONE SODIUM SUCCINATE
     Dosage: UNK
     Dates: start: 20140821, end: 20140822
  11. 5-FU [Suspect]
     Active Substance: FLUOROURACIL
     Indication: PANCREATIC CARCINOMA
     Dosage: 3250 MG (3250 MG/BODY/D1-2, 2421.8 MG/M2/D1-2)
     Route: 041
     Dates: start: 20140811, end: 20140811
  12. OPALMON [Concomitant]
     Active Substance: LIMAPROST
     Dosage: UNK
  13. OXYCONTIN [Concomitant]
     Active Substance: OXYCODONE HYDROCHLORIDE
     Dosage: UNK
  14. SUBACILLIN [Concomitant]
     Dosage: UNK
     Dates: start: 20140821
  15. ELPLAT [Suspect]
     Active Substance: OXALIPLATIN
     Indication: PANCREATIC CARCINOMA
     Dosage: 85 MG, 1X/DAY (85 MG/BODY, 63.3 MG/M2)
     Route: 041
     Dates: start: 20140811, end: 20140811
  16. DEXART [Concomitant]
     Active Substance: DEXAMETHASONE SODIUM PHOSPHATE
     Dosage: UNK
     Dates: start: 20140811, end: 20140811
  17. BAYASPIRIN [Concomitant]
     Active Substance: ASPIRIN
     Dosage: UNK
  18. IMIDAPRIL HYDROCHLORIDE [Concomitant]
     Active Substance: IMIDAPRIL HYDROCHLORIDE
     Dosage: UNK
  19. NICORANDIL [Concomitant]
     Active Substance: NICORANDIL
     Dosage: UNK
  20. HERBESSER [Concomitant]
     Active Substance: DILTIAZEM HYDROCHLORIDE
     Dosage: UNK
  21. CAMPTO [Suspect]
     Active Substance: IRINOTECAN
     Indication: PANCREATIC CARCINOMA
     Dosage: 200 MG, 1X/DAY (200 MG/BODY, 149 MG/M2)
     Route: 041
     Dates: start: 20140811, end: 20140811
  22. EMEND [Concomitant]
     Active Substance: APREPITANT
     Dosage: UNK
     Dates: start: 20140811, end: 20140814
  23. ADALAT CC [Concomitant]
     Active Substance: NIFEDIPINE
     Dosage: UNK
  24. LIVALO [Concomitant]
     Active Substance: PITAVASTATIN CALCIUM
     Dosage: UNK
  25. FILGRASTIM (GENETIC RECOMBINATION) [Concomitant]
     Dosage: UNK
     Dates: start: 20140821, end: 20140821

REACTIONS (4)
  - Bronchopneumonia [Fatal]
  - Decreased appetite [Not Recovered/Not Resolved]
  - Neutrophil count decreased [Fatal]
  - Malaise [Not Recovered/Not Resolved]

NARRATIVE: CASE EVENT DATE: 20140818
